FAERS Safety Report 18493457 (Version 2)
Quarter: 2021Q3

REPORT INFORMATION
  Report Type: Spontaneous
  Country: US (occurrence: US)
  Receive Date: 20201112
  Receipt Date: 20210930
  Transmission Date: 20211014
  Serious: Yes (Other)
  Sender: FDA-Public Use
  Company Number: US-ROCHE-2710256

PATIENT
  Sex: Male
  Weight: 109.87 kg

DRUGS (13)
  1. VALIUM [Suspect]
     Active Substance: DIAZEPAM
     Indication: ANXIETY
     Route: 048
  2. ATIVAN [Suspect]
     Active Substance: LORAZEPAM
     Indication: ANXIETY
     Route: 048
  3. ATIVAN [Suspect]
     Active Substance: LORAZEPAM
     Indication: PANIC ATTACK
  4. PRILOSEC [Concomitant]
     Active Substance: OMEPRAZOLE MAGNESIUM
     Route: 048
  5. AMLODIPINE [Concomitant]
     Active Substance: AMLODIPINE BESYLATE
     Indication: HYPERTENSION
     Route: 048
  6. FUROSEMIDE. [Concomitant]
     Active Substance: FUROSEMIDE
     Indication: PERIPHERAL SWELLING
     Route: 048
  7. VITAMIN D2 [Concomitant]
     Active Substance: ERGOCALCIFEROL
     Indication: VITAMIN D DECREASED
     Route: 048
  8. FAMOTIDINE. [Concomitant]
     Active Substance: FAMOTIDINE
     Indication: DYSPEPSIA
     Route: 048
  9. VALIUM [Suspect]
     Active Substance: DIAZEPAM
     Indication: PANIC DISORDER
     Dosage: DAILY, CUT DOSE IN HALF ;ONGOING: YES
     Route: 048
  10. FUROSEMIDE. [Concomitant]
     Active Substance: FUROSEMIDE
     Indication: DYSPNOEA
  11. NATTOKINASE [Concomitant]
     Active Substance: NATTOKINASE
     Route: 048
  12. NEXIUM [Concomitant]
     Active Substance: ESOMEPRAZOLE MAGNESIUM
  13. AMLODIPINE [Concomitant]
     Active Substance: AMLODIPINE BESYLATE
     Indication: BLOOD PRESSURE ABNORMAL
     Dosage: UNKNOWN ORIGINAL DOSE ;ONGOING: NO
     Route: 048

REACTIONS (16)
  - Nail growth abnormal [Not Recovered/Not Resolved]
  - Anaemia [Not Recovered/Not Resolved]
  - Blood pressure abnormal [Unknown]
  - Concussion [Recovered/Resolved]
  - Intervertebral disc protrusion [Not Recovered/Not Resolved]
  - Bladder cancer [Recovering/Resolving]
  - Arachnoid cyst [Not Recovered/Not Resolved]
  - Intentional product misuse [Unknown]
  - Amnesia [Not Recovered/Not Resolved]
  - Fatigue [Not Recovered/Not Resolved]
  - Fall [Unknown]
  - Hypertension [Recovering/Resolving]
  - Neoplasm malignant [Unknown]
  - Dependence [Unknown]
  - Chronic kidney disease [Not Recovered/Not Resolved]
  - Renal cancer metastatic [Recovered/Resolved]

NARRATIVE: CASE EVENT DATE: 2009
